FAERS Safety Report 17756043 (Version 1)
Quarter: 2020Q2

REPORT INFORMATION
  Report Type: Spontaneous
  Country: US (occurrence: US)
  Receive Date: 20200506
  Receipt Date: 20200506
  Transmission Date: 20200714
  Serious: Yes (Hospitalization)
  Sender: FDA-Public Use
  Company Number: None

PATIENT
  Sex: Female

DRUGS (4)
  1. ONDANSETRON [Concomitant]
     Active Substance: ONDANSETRON
  2. HYDROXYZ PAM [Concomitant]
     Active Substance: HYDROXYZINE PAMOATE
  3. METHYLPRED [Concomitant]
     Active Substance: METHYLPREDNISOLONE
  4. ILARIS [Suspect]
     Active Substance: CANAKINUMAB
     Indication: STILL^S DISEASE
     Dosage: ?          OTHER FREQUENCY:Q8WKS;?
     Route: 058
     Dates: start: 20180913

REACTIONS (1)
  - Disease recurrence [None]
